FAERS Safety Report 9940794 (Version 1)
Quarter: 2014Q1

REPORT INFORMATION
  Report Type: Spontaneous
  Country: GB (occurrence: GB)
  Receive Date: 20140303
  Receipt Date: 20140303
  Transmission Date: 20141002
  Serious: Yes (Other)
  Sender: FDA-Public Use
  Company Number: GB-WATSON-2014-03297

PATIENT
  Sex: Male

DRUGS (2)
  1. METFORMIN (UNKNOWN) [Suspect]
     Indication: TYPE 2 DIABETES MELLITUS
     Dosage: 1350 MG, BID;850MG TWICE A DAY AND 500MG TWICE A DAY.
     Route: 065
  2. SITAGLIPTIN [Suspect]
     Indication: TYPE 2 DIABETES MELLITUS
     Dosage: 100 MG, DAILY
     Route: 065
     Dates: start: 2013

REACTIONS (1)
  - Hypoglycaemia [Not Recovered/Not Resolved]
